FAERS Safety Report 24198000 (Version 1)
Quarter: 2024Q3

REPORT INFORMATION
  Report Type: Spontaneous
  Country: FR (occurrence: FR)
  Receive Date: 20240812
  Receipt Date: 20240812
  Transmission Date: 20241017
  Serious: Yes (Death, Hospitalization)
  Sender: TEVA
  Company Number: FR-AstraZeneca-2024A173618

PATIENT
  Age: 82 Year
  Sex: Male
  Weight: 71 kg

DRUGS (11)
  1. CANDESARTAN [Suspect]
     Active Substance: CANDESARTAN
     Indication: Hypertension
     Dosage: 8 MILLIGRAM, QD
     Route: 065
     Dates: start: 20240422, end: 20240601
  2. KARDEGIC [Concomitant]
     Active Substance: ASPIRIN DL-LYSINE
     Dosage: UNK
  3. AMIODARONE [Concomitant]
     Active Substance: AMIODARONE
     Dosage: 100 MILLIGRAM, QD
     Route: 048
  4. FUROSEMIDE [Suspect]
     Active Substance: FUROSEMIDE
     Indication: Chronic kidney disease
     Dosage: 40 MILLIGRAM, QD
     Route: 065
     Dates: start: 20240328, end: 20240601
  5. METFORMIN [Suspect]
     Active Substance: METFORMIN HYDROCHLORIDE
     Indication: Type 2 diabetes mellitus
     Dosage: 1500 MILLIGRAM, QD
     Route: 065
     Dates: start: 20240221
  6. ALPRAZOLAM [Concomitant]
     Active Substance: ALPRAZOLAM
     Dosage: UNK
  7. BISOPROLOL FUMARATE [Suspect]
     Active Substance: BISOPROLOL FUMARATE
     Indication: Cardiac failure
     Dosage: 1.25 MILLIGRAM, QD
     Route: 065
     Dates: start: 20240605
  8. BISOPROLOL FUMARATE [Suspect]
     Active Substance: BISOPROLOL FUMARATE
     Indication: Cardiac failure
     Dosage: 1.25 MILLIGRAM, QD
     Route: 065
     Dates: start: 20190615, end: 20240601
  9. BISOPROLOL FUMARATE [Suspect]
     Active Substance: BISOPROLOL FUMARATE
     Indication: Cardiac failure
     Dosage: 1.25 MILLIGRAM, QD
     Route: 065
  10. COTRIMOXAZOLE [Suspect]
     Active Substance: SULFAMETHOXAZOLE\TRIMETHOPRIM
     Indication: Urinary tract infection
     Dosage: 2 DOSAGE FORM, QD,  DAKOTA PHARM
     Route: 065
     Dates: start: 20240529, end: 20240601
  11. ACETAMINOPHEN [Concomitant]
     Active Substance: ACETAMINOPHEN
     Dosage: UNK

REACTIONS (16)
  - Lactic acidosis [Fatal]
  - Haematuria [Fatal]
  - Inflammation [Fatal]
  - Septic shock [Fatal]
  - Pseudomonas infection [Fatal]
  - Decreased appetite [Fatal]
  - Haematoma [Fatal]
  - Asthenia [Fatal]
  - End stage renal disease [Fatal]
  - Left ventricular dysfunction [Fatal]
  - Acute kidney injury [Fatal]
  - Hyperkalaemia [Fatal]
  - Hypoglycaemia [Fatal]
  - Cardiorenal syndrome [Fatal]
  - Serratia infection [Fatal]
  - Cardiomegaly [Fatal]

NARRATIVE: CASE EVENT DATE: 20240503
